FAERS Safety Report 9619498 (Version 3)
Quarter: 2013Q4

REPORT INFORMATION
  Report Type: Report from Study
  Country: US (occurrence: US)
  Receive Date: 20131014
  Receipt Date: 20131113
  Transmission Date: 20140711
  Serious: Yes (Hospitalization, Other)
  Sender: FDA-Public Use
  Company Number: US-PFIZER INC-2013292266

PATIENT
  Age: 29 Year
  Sex: Female

DRUGS (5)
  1. DILANTIN-125 [Suspect]
     Indication: GRAND MAL CONVULSION
     Dosage: 100 MG, 3X/DAY
  2. PHENOBARBITAL [Concomitant]
     Indication: GRAND MAL CONVULSION
     Dosage: 100 MG, 1X/DAY
  3. PHENOBARBITAL [Concomitant]
     Dosage: 65 MG, 1X/DAY
  4. PRIMIDONE [Concomitant]
     Dosage: 250 MG, 3X/DAY
  5. PRIMIDONE [Concomitant]
     Dosage: 250 MG, 2X/DAY

REACTIONS (12)
  - Toxicity to various agents [Unknown]
  - Extrapyramidal disorder [Recovered/Resolved]
  - Head titubation [Recovered/Resolved]
  - Dyskinesia [Recovered/Resolved]
  - Dysarthria [Recovered/Resolved]
  - Dystonia [Recovered/Resolved]
  - Asthenia [Recovered/Resolved]
  - Ataxia [Recovering/Resolving]
  - Monoparesis [Recovering/Resolving]
  - Drug intolerance [Recovering/Resolving]
  - Urine copper increased [Recovered/Resolved]
  - Porphyrins stool increased [Recovered/Resolved]
